FAERS Safety Report 5536658-3 (Version None)
Quarter: 2007Q4

REPORT INFORMATION
  Report Type: 
  Country: None (occurrence: None)
  Receive Date: 20071206
  Receipt Date: 20070724
  Transmission Date: 20080405
  Serious: Yes (Hospitalization)
  Sender: FDA-Public Use
  Company Number: US-AMGEN-US235758

PATIENT
  Sex: Female

DRUGS (2)
  1. ENBREL [Suspect]
     Indication: RHEUMATOID ARTHRITIS
     Route: 058
     Dates: start: 20000301, end: 20070501
  2. METHOTREXATE [Concomitant]
     Route: 065
     Dates: start: 20000101

REACTIONS (1)
  - STREPTOCOCCAL INFECTION [None]
